APPROVED DRUG PRODUCT: PRINCIPEN W/ PROBENECID
Active Ingredient: AMPICILLIN/AMPICILLIN TRIHYDRATE; PROBENECID
Strength: EQ 389MG BASE;111MG
Dosage Form/Route: CAPSULE;ORAL
Application: A062150 | Product #001
Applicant: APOTHECON SUB BRISTOL MYERS SQUIBB CO
Approved: Approved Prior to Jan 1, 1982 | RLD: No | RS: No | Type: DISCN